FAERS Safety Report 4696385-1 (Version None)
Quarter: 2005Q2

REPORT INFORMATION
  Report Type: 
  Country: None (occurrence: None)
  Receive Date: 20050615
  Receipt Date: 20040629
  Transmission Date: 20051028
  Serious: Yes (Hospitalization)
  Sender: FDA-Public Use
  Company Number: WAES 0406USA02681

PATIENT
  Age: 69 Year
  Sex: Female

DRUGS (4)
  1. COZAAR [Suspect]
     Dosage: PO
     Route: 048
     Dates: end: 20031201
  2. CELEXA [Suspect]
     Dates: end: 20040101
  3. PROZAC [Suspect]
     Dates: end: 20040101
  4. LIPITOR [Concomitant]

REACTIONS (1)
  - LIVER FUNCTION TEST ABNORMAL [None]
